FAERS Safety Report 10494238 (Version 1)
Quarter: 2014Q4

REPORT INFORMATION
  Report Type: Spontaneous
  Country: US (occurrence: US)
  Receive Date: 20141003
  Receipt Date: 20141003
  Transmission Date: 20150528
  Serious: Yes (Other)
  Sender: FDA-Public Use
  Company Number: US-GLAXOSMITHKLINE-A1090424A

PATIENT
  Age: 59 Year
  Sex: Female

DRUGS (5)
  1. FOLIC ACID. [Concomitant]
     Active Substance: FOLIC ACID
  2. METHOTREXATE [Concomitant]
     Active Substance: METHOTREXATE
  3. VENTOLIN [Suspect]
     Active Substance: ALBUTEROL SULFATE
     Indication: WHEEZING
     Route: 055
  4. ADVAIR HFA [Suspect]
     Active Substance: FLUTICASONE PROPIONATE\SALMETEROL XINAFOATE
     Indication: SARCOIDOSIS
     Dosage: 1PUFF TWICE PER DAY
     Route: 055
     Dates: start: 2000
  5. PREDNISONE. [Concomitant]
     Active Substance: PREDNISONE

REACTIONS (1)
  - Breast cancer [Unknown]

NARRATIVE: CASE EVENT DATE: 201205
